FAERS Safety Report 5709841-1 (Version None)
Quarter: 2008Q2

REPORT INFORMATION
  Report Type: 
  Country: None (occurrence: None)
  Receive Date: 20080418
  Receipt Date: 20070214
  Transmission Date: 20081010
  Serious: No
  Sender: FDA-Public Use
  Company Number: US-ASTRAZENECA-2007UW02963

PATIENT
  Age: 60 Year
  Sex: Female
  Weight: 78.5 kg

DRUGS (10)
  1. TOPROL-XL [Suspect]
     Indication: HYPERTENSION
     Route: 048
     Dates: start: 20020101
  2. TOPROL-XL [Suspect]
     Route: 048
     Dates: start: 20070101
  3. TOPROL-XL [Suspect]
     Route: 048
  4. TOPROL-XL [Suspect]
     Route: 048
  5. OMEGA 3 FATTY ACIDS [Concomitant]
  6. COQ10 [Concomitant]
  7. CALCIUM [Concomitant]
  8. MAGNESIUM [Concomitant]
  9. FOLIC ACID [Concomitant]
  10. MULTI-VITAMIN [Concomitant]

REACTIONS (2)
  - BLOOD PRESSURE FLUCTUATION [None]
  - TINNITUS [None]
